FAERS Safety Report 9876991 (Version 1)
Quarter: 2014Q1

REPORT INFORMATION
  Report Type: Spontaneous
  Country: CH (occurrence: CH)
  Receive Date: 20140206
  Receipt Date: 20140206
  Transmission Date: 20141002
  Serious: Yes (Hospitalization, Other)
  Sender: FDA-Public Use
  Company Number: CH-ASTRAZENECA-2014SE07187

PATIENT
  Age: 65 Year
  Sex: Male

DRUGS (11)
  1. TRIATEC [Suspect]
     Indication: ESSENTIAL HYPERTENSION
     Route: 048
  2. CRESTOR [Suspect]
     Indication: HYPERCHOLESTEROLAEMIA
     Route: 048
  3. METFIN [Suspect]
     Indication: TYPE 2 DIABETES MELLITUS
     Route: 048
  4. RIVOTRIL [Suspect]
     Indication: GRAND MAL CONVULSION
     Route: 048
  5. ESIDREX [Suspect]
     Indication: ESSENTIAL HYPERTENSION
     Route: 048
  6. JANUMET [Suspect]
     Indication: TYPE 2 DIABETES MELLITUS
     Dosage: 1000 MG/50 MG, 1 DF, TWO TIMES A DAY
     Route: 048
  7. DEPAKIN CHRONO [Suspect]
     Indication: GRAND MAL CONVULSION
     Route: 048
  8. ASPIRIN CARDIO [Concomitant]
     Indication: PERIPHERAL VASCULAR DISORDER
     Route: 048
  9. DAFALGAN [Concomitant]
     Route: 048
     Dates: start: 20131108, end: 20131119
  10. AUGMENTIN [Concomitant]
     Indication: BRONCHOPNEUMONIA
     Route: 041
     Dates: start: 20131108, end: 20131118
  11. PERENTEROL [Concomitant]
     Route: 048
     Dates: start: 20131108, end: 20131119

REACTIONS (3)
  - Fall [Recovered/Resolved]
  - Bronchopneumonia [Recovering/Resolving]
  - Arteriosclerosis [Unknown]
